FAERS Safety Report 9391224 (Version 2)
Quarter: 2014Q1

REPORT INFORMATION
  Report Type: Spontaneous
  Country: US (occurrence: US)
  Receive Date: 20130709
  Receipt Date: 20140121
  Transmission Date: 20141002
  Serious: Yes (Other)
  Sender: FDA-Public Use
  Company Number: US-CELGENEUS-163-21880-13070486

PATIENT
  Sex: Female

DRUGS (4)
  1. REVLIMID [Suspect]
     Indication: PLASMA CELL MYELOMA
     Dosage: 25 MILLIGRAM
     Dates: start: 201006
  2. REVLIMID [Suspect]
     Dosage: 10 MILLIGRAM
     Dates: start: 201109, end: 2012
  3. REVLIMID [Suspect]
     Dosage: 5 MILLIGRAM
     Dates: start: 201207
  4. SPIRIVA CP-HANDIHALER [Concomitant]
     Indication: PRODUCT USED FOR UNKNOWN INDICATION
     Route: 065

REACTIONS (2)
  - Breast cancer [Unknown]
  - Plasma cell myeloma recurrent [Unknown]
